FAERS Safety Report 4383551-8 (Version None)
Quarter: 2004Q2

REPORT INFORMATION
  Report Type: 
  Country: None (occurrence: None)
  Receive Date: 20040618
  Receipt Date: 20040610
  Transmission Date: 20050107
  Serious: Yes (Hospitalization, Disabling, Other)
  Sender: FDA-Public Use
  Company Number: 2004205832BE

PATIENT
  Age: 64 Year
  Sex: Female
  Weight: 77.5 kg

DRUGS (3)
  1. CELECOXIB [Suspect]
     Indication: COLORECTAL CANCER METASTATIC
     Dosage: 20800 MG CUMULATIVE DOSE, ORAL
     Route: 048
     Dates: start: 20040224, end: 20040322
  2. CAMPTOSAR [Suspect]
     Indication: COLORECTAL CANCER METASTATIC
     Dosage: 988 MG, CUMULATIVE DOSE, IV
     Route: 042
     Dates: start: 20040224, end: 20040316
  3. COMPARATOR-CAPECITABINE (CAPECITABINE, CAPECITABINE) TABLET [Suspect]
     Indication: COLORECTAL CANCER METASTATIC
     Dosage: 104 G, CUMULATIVE DOSE, ORAL
     Route: 048
     Dates: start: 20040224, end: 20040322

REACTIONS (7)
  - ANAEMIA [None]
  - ANOREXIA [None]
  - DIARRHOEA [None]
  - GASTRIC ULCER [None]
  - MELAENA [None]
  - REFLUX OESOPHAGITIS [None]
  - VOMITING [None]
